FAERS Safety Report 8179106-X (Version None)
Quarter: 2012Q1

REPORT INFORMATION
  Report Type: 
  Country: None (occurrence: None)
  Receive Date: 20120227
  Receipt Date: 20120216
  Transmission Date: 20120608
  Serious: Yes (Hospitalization, Other)
  Sender: FDA-Public Use
  Company Number: 1000027552

PATIENT
  Age: 45 Year
  Sex: Female
  Weight: 69 kg

DRUGS (2)
  1. CITALOPRAM HYDROBROMIDE [Suspect]
     Indication: DEPRESSION
     Dosage: 40 MG (20 MG, 2 IN 1 D), ORAL
     Route: 048
     Dates: start: 20120124, end: 20120129
  2. FEMOSTON (ESTRADIOL, DUDROGESTERONE) [Suspect]
     Dosage: 1MG/10MG, ORAL
     Route: 048
     Dates: start: 20120106, end: 20120113

REACTIONS (7)
  - MYALGIA [None]
  - CYTOGENETIC ABNORMALITY [None]
  - OVERDOSE [None]
  - BONE PAIN [None]
  - DYSPNOEA [None]
  - MUSCLE TWITCHING [None]
  - DRUG INTERACTION [None]
